FAERS Safety Report 15829441 (Version 1)
Quarter: 2019Q1

REPORT INFORMATION
  Report Type: Spontaneous
  Country: US (occurrence: US)
  Receive Date: 20190115
  Receipt Date: 20190115
  Transmission Date: 20190417
  Serious: No
  Sender: FDA-Public Use
  Company Number: US-PERRIGO-18US003648

PATIENT
  Age: 61 Year
  Sex: Female
  Weight: 65.76 kg

DRUGS (2)
  1. TRETINOIN. [Suspect]
     Active Substance: TRETINOIN
     Indication: ACNE
     Dosage: 1 SMALL APPLICAITON, ONCE NIGHTLY AS NEEDED
     Route: 061
     Dates: start: 201602, end: 201803
  2. TRETINOIN. [Suspect]
     Active Substance: TRETINOIN
     Indication: SCAR

REACTIONS (2)
  - Off label use [Recovered/Resolved]
  - Drug ineffective [Unknown]

NARRATIVE: CASE EVENT DATE: 201802
